FAERS Safety Report 10354891 (Version 1)
Quarter: 2014Q3

REPORT INFORMATION
  Report Type: Spontaneous
  Country: US (occurrence: None)
  Receive Date: 20140729
  Receipt Date: 20140729
  Transmission Date: 20150326
  Serious: Yes (Death)
  Sender: FDA-Public Use
  Company Number: SYM-2014-23468

PATIENT
  Age: 71 Year
  Sex: Female

DRUGS (1)
  1. XENAZINE [Suspect]
     Active Substance: TETRABENAZINE
     Indication: HUNTINGTON^S DISEASE
     Dosage: 1 DF TAB IN AM  1/2 AT 3PM 1/4 AT 8PM
     Route: 048
     Dates: start: 200902

REACTIONS (1)
  - Death [None]

NARRATIVE: CASE EVENT DATE: 20140720
